FAERS Safety Report 5098855-3 (Version None)
Quarter: 2006Q3

REPORT INFORMATION
  Report Type: 
  Country: None (occurrence: None)
  Receive Date: 20060907
  Receipt Date: 20060821
  Transmission Date: 20061208
  Serious: Yes (Life-Threatening, Hospitalization, Disabling)
  Sender: FDA-Public Use
  Company Number: GB-ROCHE-461877

PATIENT
  Age: 68 Year
  Sex: Female
  Weight: 56 kg

DRUGS (6)
  1. XELODA [Suspect]
     Indication: COLON CANCER
     Route: 048
     Dates: start: 20060630, end: 20060630
  2. OXALIPLATIN [Suspect]
     Indication: COLON CANCER
     Route: 042
     Dates: start: 20060630, end: 20060630
  3. OXALIPLATIN [Suspect]
     Route: 042
     Dates: start: 20060615, end: 20060615
  4. DEXAMETHASONE TAB [Concomitant]
     Indication: NAUSEA
     Route: 065
  5. GRANISETRON [Concomitant]
     Indication: NAUSEA
     Route: 048
  6. METOCLOPRAMIDE [Concomitant]
     Indication: NAUSEA
     Route: 048

REACTIONS (4)
  - CONFUSIONAL STATE [None]
  - CONSCIOUSNESS FLUCTUATING [None]
  - GRAND MAL CONVULSION [None]
  - SOMNOLENCE [None]
